FAERS Safety Report 5127015-2 (Version None)
Quarter: 2006Q4

REPORT INFORMATION
  Report Type: 
  Country: None (occurrence: None)
  Receive Date: 20061013
  Receipt Date: 20061003
  Transmission Date: 20070319
  Serious: Yes (Hospitalization)
  Sender: FDA-Public Use
  Company Number: FR-GLAXOSMITHKLINE-B0440673A

PATIENT
  Age: 46 Year
  Sex: Male

DRUGS (5)
  1. COMBIVIR [Suspect]
     Indication: HIV INFECTION
     Dosage: 2TAB PER DAY
     Route: 048
     Dates: end: 20060619
  2. SUSTIVA [Suspect]
     Dosage: 600MG AT NIGHT
     Route: 048
  3. ZOLPIDEM TARTRATE [Suspect]
     Dosage: 10MG PER DAY
     Route: 048
  4. RIFATER [Suspect]
     Dosage: 6TAB PER DAY
     Route: 048
     Dates: start: 20060403
  5. SUBUTEX [Suspect]
     Dosage: 1MG IN THE MORNING
     Route: 048

REACTIONS (3)
  - ANAEMIA [None]
  - NEUTROPENIA [None]
  - WEIGHT DECREASED [None]
